FAERS Safety Report 6641053-X (Version None)
Quarter: 2010Q1

REPORT INFORMATION
  Report Type: 
  Country: None (occurrence: None)
  Receive Date: 20100318
  Receipt Date: 20090701
  Transmission Date: 20100710
  Serious: Yes (Hospitalization)
  Sender: FDA-Public Use
  Company Number: US-ASTRAZENECA-2009UW18300

PATIENT
  Age: 70 Year
  Sex: Male

DRUGS (20)
  1. ZESTRIL [Suspect]
     Route: 048
     Dates: start: 20070201, end: 20090504
  2. NEORAL [Suspect]
     Indication: RENAL TRANSPLANT
     Dates: start: 20080607
  3. CELLCEPT [Suspect]
     Indication: RENAL TRANSPLANT
     Dates: start: 20070116
  4. DELTASONE [Suspect]
     Indication: RENAL TRANSPLANT
     Dates: start: 20070919
  5. ADALAT [Concomitant]
     Dates: start: 20060919
  6. ASPIRIN [Concomitant]
     Dates: start: 20071201
  7. COREG [Concomitant]
     Dates: start: 20080109
  8. FLOMAX [Concomitant]
     Dates: start: 20070815
  9. GLUCOPHAGE [Concomitant]
     Dates: start: 20080823
  10. IMDUR [Concomitant]
     Dates: start: 20060919
  11. IMODIUM [Concomitant]
     Dates: start: 20061206
  12. K-DUR [Concomitant]
     Dates: start: 20070815
  13. POTASSIUM PHOSPHATES [Concomitant]
     Dates: start: 20080109
  14. LIPITOR [Concomitant]
     Dates: start: 20061025
  15. MAGNESIUM [Concomitant]
     Dates: start: 20080529
  16. MULTI-VITAMIN [Concomitant]
     Dates: start: 20060919
  17. NITROGLYCERIN [Concomitant]
  18. PLAVIX [Concomitant]
     Dates: start: 20070915
  19. PRILOSEC [Concomitant]
     Dates: start: 20060920
  20. TYLENOL-500 [Concomitant]
     Dates: start: 20070131

REACTIONS (1)
  - ANGIOEDEMA [None]
